FAERS Safety Report 6652796-6 (Version None)
Quarter: 2010Q1

REPORT INFORMATION
  Report Type: 
  Country: None (occurrence: None)
  Receive Date: 20100325
  Receipt Date: 20100325
  Transmission Date: 20100710
  Serious: Yes (Other)
  Sender: FDA-Public Use
  Company Number: None

PATIENT
  Sex: Female
  Weight: 111.1313 kg

DRUGS (2)
  1. SEROQUEL [Suspect]
     Indication: BIPOLAR DISORDER
     Dosage: 300 MGS. 1 TIME AT NIGHT PO
     Route: 048
     Dates: start: 20090101, end: 20100318
  2. SEROQUEL [Suspect]
     Indication: SCHIZOAFFECTIVE DISORDER
     Dosage: 300 MGS. 1 TIME AT NIGHT PO
     Route: 048
     Dates: start: 20090101, end: 20100318

REACTIONS (4)
  - CATARACT [None]
  - CEREBROVASCULAR ACCIDENT [None]
  - HEADACHE [None]
  - MYOCARDIAL INFARCTION [None]
